FAERS Safety Report 6063728-6 (Version None)
Quarter: 2009Q1

REPORT INFORMATION
  Report Type: 
  Country: None (occurrence: None)
  Receive Date: 20090130
  Receipt Date: 20090115
  Transmission Date: 20090719
  Serious: Yes (Hospitalization)
  Sender: FDA-Public Use
  Company Number: M-09-0044

PATIENT
  Age: 77 Year
  Sex: Male

DRUGS (1)
  1. PACERONE [Suspect]
     Indication: VENTRICULAR TACHYCARDIA
     Dosage: 200 MG, QD, PO
     Route: 048
     Dates: start: 20081128

REACTIONS (2)
  - ATRIOVENTRICULAR BLOCK [None]
  - VENTRICULAR FLUTTER [None]
